FAERS Safety Report 15116300 (Version 1)
Quarter: 2018Q3

REPORT INFORMATION
  Report Type: Report from Study
  Country: DE (occurrence: DE)
  Receive Date: 20180706
  Receipt Date: 20180706
  Transmission Date: 20181010
  Serious: Yes (Life-Threatening, Hospitalization)
  Sender: FDA-Public Use
  Company Number: DE-PFIZER INC-2018269330

PATIENT
  Sex: Male
  Weight: 75 kg

DRUGS (4)
  1. CARBOPLATIN. [Suspect]
     Active Substance: CARBOPLATIN
     Dosage: 400 MG, UNKNOWN
     Route: 065
     Dates: end: 20180315
  2. PEMETREXED. [Suspect]
     Active Substance: PEMETREXED
     Dosage: 784 MG, UNKNOWN
     Route: 065
     Dates: end: 20180315
  3. CARBOPLATIN. [Suspect]
     Active Substance: CARBOPLATIN
     Indication: NON-SMALL CELL LUNG CANCER
     Dosage: 431 MG, DAILY
     Route: 065
     Dates: start: 20180109
  4. PEMETREXED. [Suspect]
     Active Substance: PEMETREXED
     Indication: NON-SMALL CELL LUNG CANCER
     Dosage: 816 MG, DAILY
     Route: 065
     Dates: start: 20180109

REACTIONS (7)
  - Anaemia [Recovering/Resolving]
  - Gastroenteritis norovirus [Recovered/Resolved]
  - Klebsiella sepsis [Recovered/Resolved]
  - Thrombocytopenia [Recovered/Resolved]
  - Escherichia sepsis [Recovered/Resolved]
  - Leukopenia [Recovered/Resolved]
  - Clostridial infection [Recovered/Resolved]

NARRATIVE: CASE EVENT DATE: 20180326
